FAERS Safety Report 13631313 (Version 2)
Quarter: 2017Q2

REPORT INFORMATION
  Report Type: Spontaneous
  Country: US (occurrence: US)
  Receive Date: 20170608
  Receipt Date: 20170630
  Transmission Date: 20170830
  Serious: Yes (Other)
  Sender: FDA-Public Use
  Company Number: US-TEVA-776015USA

PATIENT
  Age: 73 Year
  Sex: Male

DRUGS (1)
  1. HYDROXYCARBAMIDE [Suspect]
     Active Substance: HYDROXYUREA
     Indication: PLATELET COUNT INCREASED
     Route: 048
     Dates: start: 201705

REACTIONS (2)
  - Choking [Unknown]
  - Retching [Unknown]

NARRATIVE: CASE EVENT DATE: 201705
